FAERS Safety Report 14631304 (Version 2)
Quarter: 2018Q2

REPORT INFORMATION
  Report Type: Spontaneous
  Country: JP (occurrence: JP)
  Receive Date: 20180313
  Receipt Date: 20180410
  Transmission Date: 20180711
  Serious: Yes (Hospitalization)
  Sender: FDA-Public Use
  Company Number: JP-BRACCO DIAGNOSTICS, INC.-2018JP01174

PATIENT
  Age: 42 Year
  Sex: Female

DRUGS (5)
  1. DERMOVATE [Concomitant]
     Active Substance: CLOBETASOL
     Dosage: UNK
     Dates: start: 20180226
  2. HICEE                              /00008001/ [Concomitant]
     Dosage: UNK
     Dates: start: 20180226
  3. IOPAMIRON [Suspect]
     Active Substance: IOPAMIDOL
     Indication: DIAGNOSTIC PROCEDURE
     Dosage: 100 ML, SINGLE
     Route: 042
     Dates: start: 20180216, end: 20180216
  4. ORGAN LYSATE, STANDARDIZED [Concomitant]
     Dosage: UNK
     Dates: start: 20180219
  5. RINDERON VG [Concomitant]
     Active Substance: BETAMETHASONE VALERATE\GENTAMICIN SULFATE
     Dosage: UNK
     Dates: start: 20180221

REACTIONS (4)
  - Injection site pain [Recovered/Resolved]
  - Joint stiffness [Recovering/Resolving]
  - Infusion site extravasation [Recovering/Resolving]
  - Hypoaesthesia [Recovered/Resolved]

NARRATIVE: CASE EVENT DATE: 20180219
